FAERS Safety Report 24358112 (Version 2)
Quarter: 2024Q4

REPORT INFORMATION
  Report Type: Spontaneous
  Country: AR (occurrence: AR)
  Receive Date: 20240924
  Receipt Date: 20241105
  Transmission Date: 20250115
  Serious: Yes (Hospitalization, Other)
  Sender: BIOMARIN
  Company Number: AR-SA-2024SA270238

PATIENT

DRUGS (1)
  1. LARONIDASE [Suspect]
     Active Substance: LARONIDASE
     Indication: Mucopolysaccharidosis I
     Dosage: 3 U, QW
     Route: 042
     Dates: start: 20220526

REACTIONS (7)
  - Bronchospasm [Recovering/Resolving]
  - Pericardial effusion [Recovering/Resolving]
  - Agitation [Unknown]
  - Secretion discharge [Unknown]
  - Respiratory rate increased [Unknown]
  - Cough [Unknown]
  - Oxygen saturation decreased [Unknown]

NARRATIVE: CASE EVENT DATE: 20240903
